FAERS Safety Report 21543702 (Version 3)
Quarter: 2022Q4

REPORT INFORMATION
  Report Type: Spontaneous
  Country: GB (occurrence: GB)
  Receive Date: 20221102
  Receipt Date: 20221202
  Transmission Date: 20230113
  Serious: Yes (Life-Threatening, Hospitalization, Disabling, Other)
  Sender: FDA-Public Use
  Company Number: GB-MHRA-MED-202210272117072750-ZMHFR

PATIENT
  Age: 83 Year
  Sex: Male

DRUGS (9)
  1. VENETOCLAX [Suspect]
     Active Substance: VENETOCLAX
     Indication: Product used for unknown indication
     Dosage: ADDITIONAL INFO: ; PARENT ROUTE : ROA-20053000 (0.4.0.127.0.16.1.1.2.6 ; 1)
     Route: 048
  2. ALLOPURINOL [Concomitant]
     Active Substance: ALLOPURINOL
     Indication: Gout
  3. COTRIMOXAZOLE [Concomitant]
     Active Substance: SULFAMETHOXAZOLE\TRIMETHOPRIM
     Indication: Product used for unknown indication
  4. ACYCLOVIR [Concomitant]
     Active Substance: ACYCLOVIR
     Indication: Product used for unknown indication
  5. APIXABAN [Concomitant]
     Active Substance: APIXABAN
     Indication: Product used for unknown indication
  6. FILGRASTIM [Suspect]
     Active Substance: FILGRASTIM
     Indication: Chemotherapy
     Dosage: FIRST DOSE LATENCY 60 DAY
     Dates: start: 20220517
  7. POSACONAZOLE [Concomitant]
     Active Substance: POSACONAZOLE
     Indication: Product used for unknown indication
  8. OMEPRAZOLE [Concomitant]
     Active Substance: OMEPRAZOLE
     Indication: Product used for unknown indication
  9. VENLAFAXINE [Concomitant]
     Active Substance: VENLAFAXINE HYDROCHLORIDE
     Indication: Depression

REACTIONS (3)
  - Psychotic disorder [Recovering/Resolving]
  - Hallucination [Recovered/Resolved]
  - Major depression [Recovering/Resolving]

NARRATIVE: CASE EVENT DATE: 20220710
